FAERS Safety Report 15642737 (Version 2)
Quarter: 2018Q4

REPORT INFORMATION
  Report Type: Spontaneous
  Country: CA (occurrence: CA)
  Receive Date: 20181121
  Receipt Date: 20181122
  Transmission Date: 20190205
  Serious: Yes (Other)
  Sender: FDA-Public Use
  Company Number: CA-TEVA-2018-CA-978678

PATIENT
  Age: 65 Year
  Sex: Female
  Weight: 84 kg

DRUGS (1)
  1. RABEPRAZOLE [Suspect]
     Active Substance: RABEPRAZOLE
     Indication: GASTROOESOPHAGEAL REFLUX DISEASE
     Dosage: 40 MILLIGRAM DAILY;
     Route: 048

REACTIONS (1)
  - Dyspepsia [Recovered/Resolved]
